FAERS Safety Report 5304143-X (Version None)
Quarter: 2007Q2

REPORT INFORMATION
  Report Type: 
  Country: None (occurrence: None)
  Receive Date: 20070423
  Receipt Date: 20070409
  Transmission Date: 20071010
  Serious: Yes (Disabling, Other)
  Sender: FDA-Public Use
  Company Number: PHBS2007BR03728

PATIENT
  Age: 49 Year
  Sex: Female

DRUGS (6)
  1. TRILEPTAL [Suspect]
     Indication: PETIT MAL EPILEPSY
     Dosage: 600 MG, TID
     Dates: start: 20070214
  2. TRILEPTAL [Suspect]
     Dosage: UNK, UNK
     Route: 048
     Dates: start: 19820101
  3. OXCARBAZEPINE (AURAM) [Suspect]
     Dosage: 2DF/DAY
  4. TOPAMAX [Concomitant]
     Indication: PETIT MAL EPILEPSY
     Dosage: 20 MG, UNK
  5. RIVOTRIL [Concomitant]
     Indication: PETIT MAL EPILEPSY
     Dosage: 0.5 DF, QD
  6. PAROXETINE (PONDERA) [Concomitant]
     Indication: NEUROTRANSMITTER LEVEL ALTERED
     Route: 048

REACTIONS (25)
  - ABNORMAL SENSATION IN EYE [None]
  - ANXIETY [None]
  - AURA [None]
  - BLINDNESS [None]
  - CHILLS [None]
  - CORRECTIVE LENS USER [None]
  - CRYING [None]
  - DIPLOPIA [None]
  - DISORIENTATION [None]
  - DRUG INEFFECTIVE [None]
  - EYE MOVEMENT DISORDER [None]
  - FEAR [None]
  - FEELING ABNORMAL [None]
  - HEADACHE [None]
  - IMPAIRED WORK ABILITY [None]
  - MALAISE [None]
  - OPTIC NERVE DISORDER [None]
  - PETIT MAL EPILEPSY [None]
  - RETINAL DISORDER [None]
  - SOCIAL AVOIDANT BEHAVIOUR [None]
  - SPEECH DISORDER [None]
  - TONGUE DISORDER [None]
  - VISUAL ACUITY REDUCED [None]
  - VISUAL DISTURBANCE [None]
  - VISUAL FIELD TESTS ABNORMAL [None]
